FAERS Safety Report 17354264 (Version 1)
Quarter: 2020Q1

REPORT INFORMATION
  Report Type: Spontaneous
  Country: US (occurrence: US)
  Receive Date: 20200127
  Receipt Date: 20200127
  Transmission Date: 20200409
  Serious: Yes (Hospitalization)
  Sender: FDA-Public Use
  Company Number: US-EMCURE PHARMACEUTICALS LTD-2020-EPL-0059

PATIENT
  Age: 41 Year
  Sex: Male

DRUGS (9)
  1. MYCOPHENOLATE [Concomitant]
     Active Substance: MYCOPHENOLIC ACID
     Dosage: 360 MILLIGRAM, BID
     Route: 065
  2. ESCITALOPRAM [Concomitant]
     Active Substance: ESCITALOPRAM OXALATE
     Dosage: 20 MILLIGRAM
  3. TACROLIMUS. [Suspect]
     Active Substance: TACROLIMUS
     Indication: IMMUNOSUPPRESSANT DRUG THERAPY
     Dosage: 1 MILLIGRAM, BID
     Route: 065
  4. ALPRAZOLAM. [Concomitant]
     Active Substance: ALPRAZOLAM
     Dosage: 1 MILLIGRAM, BID, AS NEEDED
  5. LAMOTRIGINE. [Concomitant]
     Active Substance: LAMOTRIGINE
     Indication: AGITATION
  6. QUETIAPINE. [Concomitant]
     Active Substance: QUETIAPINE
     Indication: MANIA
     Route: 065
  7. LAMOTRIGINE. [Concomitant]
     Active Substance: LAMOTRIGINE
     Indication: DELUSION OF GRANDEUR
     Dosage: 100 MILLIGRAM
  8. AMOXICILLIN/CLAVULANIC ACID [Concomitant]
     Active Substance: AMOXICILLIN\CLAVULANIC ACID
     Indication: UPPER RESPIRATORY TRACT INFECTION
  9. CIPROFLOXACIN. [Interacting]
     Active Substance: CIPROFLOXACIN
     Indication: SINUSITIS
     Route: 065

REACTIONS (3)
  - Drug level increased [Recovered/Resolved]
  - Catatonia [Recovering/Resolving]
  - Drug interaction [Unknown]
